FAERS Safety Report 25022419 (Version 1)
Quarter: 2025Q1

REPORT INFORMATION
  Report Type: Spontaneous
  Country: IT (occurrence: IT)
  Receive Date: 20250228
  Receipt Date: 20250228
  Transmission Date: 20250408
  Serious: Yes (Death)
  Sender: ROCHE
  Company Number: None

PATIENT
  Age: 73 Year
  Sex: Male
  Weight: 90 kg

DRUGS (17)
  1. RITUXIMAB [Suspect]
     Active Substance: RITUXIMAB
     Indication: Lymphoma
     Route: 042
     Dates: start: 20241021, end: 20241120
  2. FUROSEMIDE [Concomitant]
     Active Substance: FUROSEMIDE
     Dosage: 1/4 TABLET OF 500 MG (125 MG) ONCE A DAY
  3. PREDNISONE [Concomitant]
     Active Substance: PREDNISONE
  4. BACTRIM [Concomitant]
     Active Substance: SULFAMETHOXAZOLE\TRIMETHOPRIM
     Route: 048
  5. FOLINA [Concomitant]
     Route: 048
  6. DEURSIL [Concomitant]
     Active Substance: URSODIOL
     Route: 048
  7. NEBIVOLOL [Concomitant]
     Active Substance: NEBIVOLOL
     Route: 048
  8. LACIDIPINA [Concomitant]
     Dosage: 6 MG 1 CP/DIE
     Route: 048
  9. CHOLECALCIFEROL [Concomitant]
     Active Substance: CHOLECALCIFEROL
     Route: 048
  10. DOXAZOSIN [Concomitant]
     Active Substance: DOXAZOSIN MESYLATE
  11. FUROSEMIDE [Concomitant]
     Active Substance: FUROSEMIDE
  12. LANSOPRAZOLE [Concomitant]
     Active Substance: LANSOPRAZOLE
     Route: 048
  13. CYANOCOBALAMIN\PYRIDOXINE\THIAMINE [Concomitant]
     Active Substance: CYANOCOBALAMIN\PYRIDOXINE\THIAMINE
  14. ERYTHROPOIETIN [Concomitant]
     Active Substance: ERYTHROPOIETIN
  15. LANTUS [Concomitant]
     Active Substance: INSULIN GLARGINE
  16. HUMALOG [Concomitant]
     Active Substance: INSULIN LISPRO
  17. CEFIXIME [Concomitant]
     Active Substance: CEFIXIME
     Dates: start: 20241218

REACTIONS (2)
  - Leukopenia [Fatal]
  - Septic shock [Fatal]

NARRATIVE: CASE EVENT DATE: 20241219
